FAERS Safety Report 6751500-0 (Version None)
Quarter: 2010Q2

REPORT INFORMATION
  Report Type: 
  Country: None (occurrence: None)
  Receive Date: 20100602
  Receipt Date: 20100518
  Transmission Date: 20101027
  Serious: Yes (Hospitalization)
  Sender: FDA-Public Use
  Company Number: FR-ASTRAZENECA-2010SE22854

PATIENT
  Age: 56 Year
  Sex: Male

DRUGS (8)
  1. NEXIUM [Suspect]
     Indication: PROPHYLAXIS
     Route: 048
     Dates: start: 20100401, end: 20100512
  2. TAHOR [Suspect]
     Indication: HYPERCHOLESTEROLAEMIA
     Route: 048
     Dates: end: 20100512
  3. COVERSYL [Concomitant]
  4. FLUDEX [Concomitant]
  5. AMLOR [Concomitant]
  6. ASPEGIC 1000 [Concomitant]
  7. LOVENOX [Concomitant]
  8. IMOVANE [Concomitant]

REACTIONS (2)
  - CHOLESTASIS [None]
  - CYTOLYTIC HEPATITIS [None]
